FAERS Safety Report 13523232 (Version 3)
Quarter: 2017Q4

REPORT INFORMATION
  Report Type: Spontaneous
  Country: US (occurrence: US)
  Receive Date: 20170508
  Receipt Date: 20171207
  Transmission Date: 20180320
  Serious: No
  Sender: FDA-Public Use
  Company Number: US-VIFOR (INTERNATIONAL) INC.-VIT-2017-01067

PATIENT
  Age: 70 Year
  Sex: Female

DRUGS (20)
  1. CELEXA [Concomitant]
     Active Substance: CITALOPRAM HYDROBROMIDE
  2. PRILOSEC [Concomitant]
     Active Substance: OMEPRAZOLE MAGNESIUM
  3. VELTASSA [Suspect]
     Active Substance: PATIROMER
     Indication: HYPERKALAEMIA
     Route: 048
     Dates: start: 20161201
  4. ELIDEL [Concomitant]
     Active Substance: PIMECROLIMUS
  5. PRAVASTATIN. [Concomitant]
     Active Substance: PRAVASTATIN
  6. TRAMADOL. [Concomitant]
     Active Substance: TRAMADOL
  7. XANAX [Concomitant]
     Active Substance: ALPRAZOLAM
  8. LYRICA [Concomitant]
     Active Substance: PREGABALIN
  9. PLAVIX [Concomitant]
     Active Substance: CLOPIDOGREL BISULFATE
  10. ZEGERID [Concomitant]
     Active Substance: OMEPRAZOLE\SODIUM BICARBONATE
  11. PHENAZOPYRIDINE. [Concomitant]
     Active Substance: PHENAZOPYRIDINE
  12. SYNTHROID [Concomitant]
     Active Substance: LEVOTHYROXINE SODIUM
  13. MVI [Concomitant]
     Active Substance: VITAMINS
  14. NITROSTAT [Concomitant]
     Active Substance: NITROGLYCERIN
  15. PENICILLINS [Suspect]
     Active Substance: PENICILLIN
  16. ENALAPRIL [Concomitant]
     Active Substance: ENALAPRIL
  17. NORVASC [Concomitant]
     Active Substance: AMLODIPINE BESYLATE
  18. NORVAST [Concomitant]
  19. CELEBREX [Concomitant]
     Active Substance: CELECOXIB
  20. NOVOLIN N [Concomitant]
     Active Substance: INSULIN HUMAN

REACTIONS (4)
  - Drug dose omission [Unknown]
  - Blister [Not Recovered/Not Resolved]
  - Oral pain [Not Recovered/Not Resolved]
  - Lip swelling [Not Recovered/Not Resolved]

NARRATIVE: CASE EVENT DATE: 20170508
